FAERS Safety Report 8890229 (Version 1)
Quarter: 2012Q4

REPORT INFORMATION
  Report Type: 
  Country: US (occurrence: US)
  Receive Date: 20121107
  Receipt Date: 20121107
  Transmission Date: 20130627
  Serious: Yes (Other)
  Sender: FDA-Public Use
  Company Number: US-RANBAXY-2012US-61769

PATIENT
  Age: 63 Year
  Sex: Female

DRUGS (8)
  1. IBUPROFEN [Suspect]
     Indication: BACK PAIN
     Dosage: 800 mg, tid
  2. LISINOPRIL [Suspect]
     Indication: HYPERTENSION
     Dosage: 10 mg/day
     Route: 065
  3. LISINOPRIL [Suspect]
     Indication: HYPERTENSION
     Dosage: 20 mg/day
     Route: 065
  4. FLUDROCORTISONE [Suspect]
     Indication: PRODUCT USED FOR UNKNOWN INDICATION
     Dosage: 0.1 mg/day
     Route: 065
  5. SODIUM CHLORIDE [Suspect]
     Indication: HYPOVOLAEMIA
     Dosage: 8 g/day
     Route: 048
  6. SODIUM CHLORIDE [Suspect]
     Indication: HYPOVOLAEMIA
     Dosage: 4 g/day
     Route: 048
  7. ASPIRIN [Concomitant]
     Indication: PRODUCT USED FOR UNKNOWN INDICATION
     Dosage: UNK
     Route: 065
  8. METOPROLOL [Concomitant]
     Indication: PRODUCT USED FOR UNKNOWN INDICATION
     Dosage: UNK
     Route: 065

REACTIONS (7)
  - Glomerulonephritis membranous [Recovering/Resolving]
  - Hypoaldosteronism [Unknown]
  - Oedema [Unknown]
  - Accelerated hypertension [Unknown]
  - Renal failure acute [Recovering/Resolving]
  - Hyperkalaemia [Unknown]
  - Weight decreased [Unknown]
